FAERS Safety Report 9402968 (Version 1)
Quarter: 2013Q3

REPORT INFORMATION
  Report Type: Spontaneous
  Country: RS (occurrence: RS)
  Receive Date: 20130716
  Receipt Date: 20130716
  Transmission Date: 20140515
  Serious: Yes (Other)
  Sender: FDA-Public Use
  Company Number: RS-JNJFOC-20130707480

PATIENT
  Sex: 0

DRUGS (8)
  1. FENTANYL CITRATE [Suspect]
     Indication: ANAESTHESIA
     Route: 042
  2. LEVOFLOXACIN [Suspect]
     Indication: ANTIBIOTIC PROPHYLAXIS
     Route: 065
  3. PARACETAMOL [Suspect]
     Indication: ANTIPYRESIS
     Route: 065
  4. PARACETAMOL [Suspect]
     Indication: ANALGESIC THERAPY
     Route: 065
  5. IBUPROFEN [Suspect]
     Indication: RHEUMATIC DISORDER
     Route: 065
  6. IBUPROFEN [Suspect]
     Indication: ANTIINFLAMMATORY THERAPY
     Route: 065
  7. SIMVASTATIN [Suspect]
     Indication: HYPERLIPIDAEMIA
     Route: 065
  8. INFLIXIMAB RECOMBINANT [Suspect]
     Indication: IMMUNOSUPPRESSION

REACTIONS (1)
  - Drug-induced liver injury [Unknown]
